FAERS Safety Report 10971805 (Version 1)
Quarter: 2015Q1

REPORT INFORMATION
  Report Type: Spontaneous
  Country: IT (occurrence: IT)
  Receive Date: 20150331
  Receipt Date: 20150331
  Transmission Date: 20150721
  Serious: Yes (Hospitalization)
  Sender: FDA-Public Use
  Company Number: PHHY2015IT038240

PATIENT
  Sex: Male

DRUGS (1)
  1. AMOXICILLIN. [Suspect]
     Active Substance: AMOXICILLIN
     Indication: RESPIRATORY TRACT INFECTION
     Dosage: 3 DF, QD
     Route: 048
     Dates: start: 20150303, end: 20150313

REACTIONS (2)
  - Bronchitis [Recovering/Resolving]
  - Drug ineffective [Unknown]

NARRATIVE: CASE EVENT DATE: 20150314
